FAERS Safety Report 22246611 (Version 2)
Quarter: 2023Q2

REPORT INFORMATION
  Report Type: Report from Study
  Country: US (occurrence: US)
  Receive Date: 20230424
  Receipt Date: 20230505
  Transmission Date: 20230721
  Serious: Yes (Other)
  Sender: FDA-Public Use
  Company Number: US-MYLANLABS-2023M1010168

PATIENT
  Age: 45 Year
  Sex: Male

DRUGS (1)
  1. CELECOXIB [Suspect]
     Active Substance: CELECOXIB
     Indication: Product used for unknown indication
     Dosage: UNK
     Route: 065

REACTIONS (5)
  - Dystonia [Unknown]
  - Drug hypersensitivity [Unknown]
  - Arthralgia [Unknown]
  - Generalised oedema [Unknown]
  - Drug ineffective [Unknown]
